FAERS Safety Report 22200337 (Version 1)
Quarter: 2023Q2

REPORT INFORMATION
  Report Type: Spontaneous
  Country: PT (occurrence: PT)
  Receive Date: 20230412
  Receipt Date: 20230412
  Transmission Date: 20230721
  Serious: Yes (Other)
  Sender: FDA-Public Use
  Company Number: PT-INFARMED-T202303-753

PATIENT
  Age: 59 Year
  Sex: Female
  Weight: 61 kg

DRUGS (9)
  1. TRAZODONE HYDROCHLORIDE [Suspect]
     Active Substance: TRAZODONE HYDROCHLORIDE
     Indication: Insomnia
     Dosage: 50 MILLIGRAM, ONCE A DAY (1/2 AO DEITAR)
     Route: 048
     Dates: start: 20230223, end: 20230225
  2. ATORVASTATIN CALCIUM\EZETIMIBE [Concomitant]
     Active Substance: ATORVASTATIN CALCIUM\EZETIMIBE
     Indication: Product used for unknown indication
     Dosage: 1 DOSAGE FORM, ONCE A DAY (1 ? NOITE)
     Route: 048
  3. BISOPROLOL [Concomitant]
     Active Substance: BISOPROLOL
     Indication: Product used for unknown indication
     Dosage: 2.5 MILLIGRAM, ONCE A DAY (1 AO PEQ ALMO?O)
     Route: 048
  4. Espironolactona mylan [Concomitant]
     Indication: Product used for unknown indication
     Dosage: 25 MILLIGRAM, ONCE A DAY (1 AO ALMO?O)
     Route: 048
  5. DAPAGLIFLOZIN [Concomitant]
     Active Substance: DAPAGLIFLOZIN
     Indication: Product used for unknown indication
     Dosage: 10 MILLIGRAM, ONCE A DAY (1 DE MANH?)
     Route: 048
  6. SERTRALINE [Concomitant]
     Active Substance: SERTRALINE HYDROCHLORIDE
     Indication: Product used for unknown indication
     Dosage: 100 MILLIGRAM, ONCE A DAY (1 AO PEQ ALMO?O)
     Route: 048
  7. MEXAZOLAM [Concomitant]
     Active Substance: MEXAZOLAM
     Indication: Product used for unknown indication
     Dosage: 1 MILLIGRAM, ONCE A DAY (1 DE MANH? E EM SOS)
     Route: 048
  8. ETHYL LOFLAZEPATE [Concomitant]
     Active Substance: ETHYL LOFLAZEPATE
     Indication: Product used for unknown indication
     Dosage: 2 MILLIGRAM (1 DE MANH? E 1 ? NOITE)
     Route: 048
  9. Zolpidem aurovitas [Concomitant]
     Indication: Product used for unknown indication
     Dosage: 10 MILLIGRAM (1 EM SOS)
     Route: 048

REACTIONS (2)
  - Back pain [Recovered/Resolved]
  - Erythema [Recovered/Resolved]

NARRATIVE: CASE EVENT DATE: 20230225
